FAERS Safety Report 5779053-4 (Version None)
Quarter: 2008Q2

REPORT INFORMATION
  Report Type: 
  Country: None (occurrence: None)
  Receive Date: 20080617
  Receipt Date: 20080604
  Transmission Date: 20081010
  Serious: Yes (Other)
  Sender: FDA-Public Use
  Company Number: 235337J08USA

PATIENT
  Age: 64 Year
  Sex: Male

DRUGS (3)
  1. REBIF [Suspect]
     Indication: MULTIPLE SCLEROSIS
     Dosage: 44 MCG, 3 IN1 WEEKS, SUBCUTANEOUS
     Route: 058
     Dates: start: 20070126
  2. ANTIDEPRESSANTS (ANTIDEPRESSANTS) [Concomitant]
  3. NEURONTIN [Concomitant]

REACTIONS (1)
  - FLUID RETENTION [None]
